FAERS Safety Report 17881230 (Version 8)
Quarter: 2021Q1

REPORT INFORMATION
  Report Type: Report from Study
  Country: DE (occurrence: DE)
  Receive Date: 20200610
  Receipt Date: 20210313
  Transmission Date: 20210419
  Serious: Yes (Death, Hospitalization, Other)
  Sender: FDA-Public Use
  Company Number: DE-BRISTOL-MYERS SQUIBB COMPANY-BMS-2020-041121

PATIENT
  Age: 44 Year
  Sex: Male

DRUGS (1)
  1. NIVOLUMAB [Suspect]
     Active Substance: NIVOLUMAB
     Indication: MALIGNANT MELANOMA
     Dosage: 80 MILLIGRAM, Q2WK
     Route: 042
     Dates: start: 20180723, end: 20200422

REACTIONS (8)
  - Malignant neoplasm progression [Unknown]
  - Autoimmune pancreatitis [Unknown]
  - Autoimmune hepatitis [Fatal]
  - Hepatic failure [Fatal]
  - Gamma-glutamyltransferase increased [Unknown]
  - General physical health deterioration [Unknown]
  - Diarrhoea [Recovered/Resolved]
  - Prescribed underdose [Unknown]

NARRATIVE: CASE EVENT DATE: 20200305
